FAERS Safety Report 8162526-7 (Version None)
Quarter: 2012Q1

REPORT INFORMATION
  Report Type: 
  Country: None (occurrence: None)
  Receive Date: 20120224
  Receipt Date: 20110707
  Transmission Date: 20120608
  Serious: No
  Sender: FDA-Public Use
  Company Number: US-PFIZER INC-K201100792

PATIENT
  Sex: Male

DRUGS (2)
  1. ALTACE [Suspect]
     Indication: VASCULAR GRAFT
  2. ALTACE [Suspect]
     Indication: STENT PLACEMENT
     Dosage: UNK
     Route: 048
     Dates: end: 20110601

REACTIONS (3)
  - VENTRICULAR EXTRASYSTOLES [None]
  - ANGIOEDEMA [None]
  - BLOOD THYROID STIMULATING HORMONE INCREASED [None]
